FAERS Safety Report 9356405 (Version 3)
Quarter: 2014Q1

REPORT INFORMATION
  Report Type: Spontaneous
  Country: US (occurrence: US)
  Receive Date: 20130619
  Receipt Date: 20140103
  Transmission Date: 20141002
  Serious: Yes (Hospitalization, Other)
  Sender: FDA-Public Use
  Company Number: US-B.I. PHARMACEUTICALS,INC./RIDGEFIELD-2013-BI-16838BP

PATIENT
  Sex: Male
  Weight: 65.77 kg

DRUGS (5)
  1. PRADAXA [Suspect]
     Indication: ATRIAL FIBRILLATION
     Dates: end: 201110
  2. CENTRUM SILVER [Concomitant]
  3. CALTRATE 600-D PLUS [Concomitant]
  4. GLUCOSAMINE CHONDROITIN [Concomitant]
  5. FISH OIL [Concomitant]

REACTIONS (5)
  - Haemorrhage intracranial [Unknown]
  - Haemorrhagic stroke [Unknown]
  - Ischaemic stroke [Unknown]
  - Respiratory failure [Unknown]
  - Convulsion [Unknown]
